FAERS Safety Report 22876616 (Version 5)
Quarter: 2023Q4

REPORT INFORMATION
  Report Type: Spontaneous
  Country: BE (occurrence: BE)
  Receive Date: 20230829
  Receipt Date: 20231204
  Transmission Date: 20240109
  Serious: Yes (Death, Life-Threatening, Hospitalization, Other)
  Sender: FDA-Public Use
  Company Number: BE-JNJFOC-20230858362

PATIENT
  Age: 87 Year
  Sex: Female

DRUGS (9)
  1. ACETAMINOPHEN [Interacting]
     Active Substance: ACETAMINOPHEN
     Indication: Staphylococcal infection
     Dosage: 3 G, QD (1 G, TID), ADDITIONAL INFORMATION ON DRUG (CODED)-OFF LABEL USE, MEDICATION ERROR
     Route: 065
  2. ACETAMINOPHEN [Interacting]
     Active Substance: ACETAMINOPHEN
     Indication: Back pain
  3. ACETAMINOPHEN [Interacting]
     Active Substance: ACETAMINOPHEN
     Indication: Analgesic therapy
  4. FLUCLOXACILLIN [Interacting]
     Active Substance: FLUCLOXACILLIN
     Indication: Staphylococcal infection
     Dosage: 12 G, QD (2 G, 6QD FOR 6 WEEKS)
     Route: 065
  5. FLUCLOXACILLIN [Interacting]
     Active Substance: FLUCLOXACILLIN
     Dosage: 8 G, QD (2 G, QID), ADDITIONAL INFORMATION ON DRUG (CODED)-MEDICATION ERROR
     Route: 065
  6. RIFAMPIN [Concomitant]
     Active Substance: RIFAMPIN
     Indication: Staphylococcal infection
     Route: 065
  7. OXYCODONE HYDROCHLORIDE [Concomitant]
     Active Substance: OXYCODONE HYDROCHLORIDE
     Indication: Analgesic therapy
     Route: 065
  8. CIPROFLOXACIN HYDROCHLORIDE [Concomitant]
     Active Substance: CIPROFLOXACIN HYDROCHLORIDE
     Indication: Urinary tract infection
     Dosage: 1000 MG, QD (500 MG, BID)
     Route: 048
  9. TRAMADOL [Concomitant]
     Active Substance: TRAMADOL\TRAMADOL HYDROCHLORIDE
     Indication: Product used for unknown indication
     Route: 065

REACTIONS (8)
  - Metabolic acidosis [Fatal]
  - Acute kidney injury [Fatal]
  - General physical health deterioration [Fatal]
  - Somnolence [Fatal]
  - Confusional state [Fatal]
  - Apathy [Fatal]
  - Labelled drug-drug interaction medication error [Unknown]
  - Drug interaction [Unknown]
